FAERS Safety Report 9424309 (Version 1)
Quarter: 2013Q3

REPORT INFORMATION
  Report Type: Spontaneous
  Country: FR (occurrence: None)
  Receive Date: 20130724
  Receipt Date: 20130724
  Transmission Date: 20140515
  Serious: Yes (Hospitalization)
  Sender: FDA-Public Use
  Company Number: 1805879

PATIENT
  Age: 67 Year
  Sex: Female

DRUGS (15)
  1. GEMCITABINE HYDROCHLORIDE [Suspect]
     Indication: MYCOSIS FUNGOIDES
     Dosage: CYCLICAL,  (NOT OTHERWISE SPECIFIED)
     Route: 042
     Dates: start: 20130531, end: 20130531
  2. SPECIAFOLDINE [Concomitant]
  3. SEROPLEX [Concomitant]
  4. PREVISCAN /00261401/ [Concomitant]
  5. LOXEN [Concomitant]
  6. LEXOMIL [Concomitant]
  7. LEVOTHYROX [Concomitant]
  8. LASILIX /00032602 [Concomitant]
  9. IMOVANE [Concomitant]
  10. INEXIUM /01479302/ [Concomitant]
  11. HYPERIUM [Concomitant]
  12. EFFERALGAN /00020001/ [Concomitant]
  13. CARDENSIEL [Concomitant]
  14. ATARAX /00058401/ [Concomitant]
  15. NOVOMIX [Concomitant]

REACTIONS (2)
  - Thrombotic microangiopathy [None]
  - Haemoglobin decreased [None]
